FAERS Safety Report 11298947 (Version 1)
Quarter: 2015Q3

REPORT INFORMATION
  Report Type: Spontaneous
  Country: US (occurrence: US)
  Receive Date: 20150722
  Receipt Date: 20150722
  Transmission Date: 20151125
  Serious: No
  Sender: FDA-Public Use
  Company Number: US-ELI_LILLY_AND_COMPANY-US201206003190

PATIENT
  Sex: Male

DRUGS (3)
  1. HUMATROPE [Suspect]
     Active Substance: SOMATROPIN
     Indication: HYPOPITUITARISM
  2. ANDROGEL [Concomitant]
     Active Substance: TESTOSTERONE
  3. MARIJUANA [Concomitant]
     Active Substance: CANNABIS SATIVA SUBSP. INDICA TOP

REACTIONS (5)
  - Hyperhidrosis [Recovered/Resolved]
  - Drug dose omission [Recovered/Resolved]
  - Sinusitis [Unknown]
  - Palpitations [Recovered/Resolved]
  - Back pain [Unknown]
